FAERS Safety Report 7561549-6 (Version None)
Quarter: 2011Q2

REPORT INFORMATION
  Report Type: 
  Country: None (occurrence: None)
  Receive Date: 20110621
  Receipt Date: 20101109
  Transmission Date: 20111010
  Serious: No
  Sender: FDA-Public Use
  Company Number: US-ASTRAZENECA-2010SE53289

PATIENT
  Sex: Female
  Weight: 70.3 kg

DRUGS (9)
  1. METHOTREXATE [Concomitant]
  2. MEVACOR [Concomitant]
  3. TENORMIN [Concomitant]
  4. FOLIC ACID [Concomitant]
  5. ZOLOFT [Concomitant]
  6. PULMICORT FLEXHALER [Suspect]
     Dosage: 360 MCGS TWO PUFFS ONCE DAILY
     Route: 055
     Dates: end: 20101109
  7. ZETIA [Concomitant]
  8. PULMICORT FLEXHALER [Suspect]
     Indication: BRONCHITIS
     Dosage: 360 MCGS TWO PUFFS IN MORNING AND TWO PUFFS IN EVENING
     Route: 055
     Dates: start: 20101103
  9. ASPIRIN [Concomitant]

REACTIONS (3)
  - INAPPROPRIATE SCHEDULE OF DRUG ADMINISTRATION [None]
  - COUGH [None]
  - STAPHYLOCOCCAL INFECTION [None]
